FAERS Safety Report 19659754 (Version 2)
Quarter: 2021Q3

REPORT INFORMATION
  Report Type: Spontaneous
  Country: JP (occurrence: JP)
  Receive Date: 20210804
  Receipt Date: 20210826
  Transmission Date: 20211014
  Serious: Yes (Other)
  Sender: FDA-Public Use
  Company Number: JP-JNJFOC-20210766144

PATIENT
  Age: 6 Decade
  Sex: Male

DRUGS (2)
  1. STELARA [Suspect]
     Active Substance: USTEKINUMAB
     Indication: CROHN^S DISEASE
     Dosage: DOSE UNKNOWN
     Route: 042
  2. STELARA [Suspect]
     Active Substance: USTEKINUMAB
     Dosage: DOSE UNKNOWN
     Route: 058

REACTIONS (1)
  - Chronic myeloid leukaemia [Unknown]
